FAERS Safety Report 4353231-3 (Version None)
Quarter: 2004Q2

REPORT INFORMATION
  Report Type: 
  Country: None (occurrence: None)
  Receive Date: 20040429
  Receipt Date: 20040326
  Transmission Date: 20050107
  Serious: Yes (Hospitalization)
  Sender: FDA-Public Use
  Company Number: REL-RIR-111

PATIENT
  Age: 88 Year
  Sex: Female

DRUGS (6)
  1. RYTHMOL [Suspect]
     Indication: ARRHYTHMIA
     Dosage: 450 MG TID ORAL
     Route: 048
     Dates: start: 19980101, end: 20040127
  2. ASPIRIN [Concomitant]
  3. SERETIDE [Concomitant]
  4. OMEPRAZOLE [Concomitant]
  5. DELORZEPAM [Concomitant]
  6. ACETAMINOPHEN [Concomitant]

REACTIONS (1)
  - BRONCHOSPASM [None]
